FAERS Safety Report 5529470-2 (Version None)
Quarter: 2007Q4

REPORT INFORMATION
  Report Type: 
  Country: None (occurrence: None)
  Receive Date: 20071129
  Receipt Date: 20071115
  Transmission Date: 20080405
  Serious: Yes (Hospitalization)
  Sender: FDA-Public Use
  Company Number: GB-RANBAXY-2007RR-11506

PATIENT

DRUGS (1)
  1. ACETAMINOPHEN [Suspect]
     Indication: ANALGESIA
     Dosage: 30 G, UNK
     Route: 048

REACTIONS (5)
  - ACTIVATED PARTIAL THROMBOPLASTIN TIME NORMAL [None]
  - FACTOR VII DEFICIENCY [None]
  - INTENTIONAL OVERDOSE [None]
  - LIVER FUNCTION TEST NORMAL [None]
  - POISONING [None]
